FAERS Safety Report 24387026 (Version 1)
Quarter: 2024Q4

REPORT INFORMATION
  Report Type: Spontaneous
  Country: IT (occurrence: IT)
  Receive Date: 20241002
  Receipt Date: 20241002
  Transmission Date: 20250115
  Serious: Yes (Other)
  Sender: ACCORD
  Company Number: IT-AMGEN-ITASP2021142935

PATIENT
  Age: 32 Year
  Sex: Male

DRUGS (2)
  1. CINACALCET HYDROCHLORIDE [Suspect]
     Active Substance: CINACALCET HYDROCHLORIDE
     Indication: Hyperparathyroidism tertiary
     Dosage: 30 MILLIGRAM, QD
  2. ETELCALCETIDE [Suspect]
     Active Substance: ETELCALCETIDE
     Indication: Hyperparathyroidism tertiary
     Dosage: 5 MILLIGRAM, 3 TIMES/WK

REACTIONS (6)
  - Pyrexia [Unknown]
  - Myelofibrosis [Recovering/Resolving]
  - Parathyroid gland enlargement [Unknown]
  - Asthenia [Unknown]
  - Hypocalcaemia [Unknown]
  - Treatment noncompliance [Unknown]
